FAERS Safety Report 6716795-8 (Version None)
Quarter: 2010Q2

REPORT INFORMATION
  Report Type: 
  Country: None (occurrence: None)
  Receive Date: 20100510
  Receipt Date: 20100510
  Transmission Date: 20101027
  Serious: Yes (Hospitalization, Other)
  Sender: FDA-Public Use
  Company Number: DE-ABBOTT-10P-062-0640571-00

PATIENT
  Sex: Male
  Weight: 77 kg

DRUGS (7)
  1. HUMIRA [Suspect]
     Indication: CROHN'S DISEASE
     Route: 058
     Dates: start: 20100301
  2. AZATHIOPRIN [Concomitant]
     Indication: CROHN'S DISEASE
  3. REMERGIL [Concomitant]
     Indication: DRUG USE FOR UNKNOWN INDICATION
  4. SULFASALAZINE [Concomitant]
     Indication: CROHN'S DISEASE
     Dates: start: 20100101
  5. BUDESONIDE [Concomitant]
     Indication: CROHN'S DISEASE
     Dates: start: 20100101
  6. GLUCOCORTICOIDS [Concomitant]
     Indication: CROHN'S DISEASE
     Dates: start: 20100101
  7. INFIXIMAB [Concomitant]
     Indication: CROHN'S DISEASE
     Dosage: TOTAL DURATION OF TREATMENT 4 MONTHS
     Dates: start: 20090101

REACTIONS (1)
  - ILEUS [None]
